FAERS Safety Report 4712163-9 (Version None)
Quarter: 2005Q3

REPORT INFORMATION
  Report Type: 
  Country: None (occurrence: None)
  Receive Date: 20050712
  Receipt Date: 20030812
  Transmission Date: 20060218
  Serious: Yes (Life-Threatening, Hospitalization)
  Sender: FDA-Public Use
  Company Number: GB-ROCHE-344475

PATIENT
  Age: 64 Year
  Sex: Female
  Weight: 80 kg

DRUGS (5)
  1. XENICAL [Suspect]
     Indication: OBESITY
     Dosage: STARTED 3 MONTHS BEFORE ADMISSION. THERAPY DURATION STATED AS 2.8 MONTHS.
     Route: 048
     Dates: start: 19990622, end: 19990914
  2. METFORMIN [Interacting]
     Indication: DIABETES MELLITUS NON-INSULIN-DEPENDENT
     Route: 048
     Dates: start: 19940615
  3. CIMETIDINE [Interacting]
     Indication: ABDOMINAL PAIN UPPER
     Dosage: STARTED 4 DAYS BEFORE ADMISSION.
     Route: 048
     Dates: start: 19990814
  4. AMILORIDE HCL AND HYDROCHLOROTHIAZIDE [Concomitant]
     Route: 048
     Dates: start: 19940615
  5. ASPIRIN [Concomitant]
     Indication: MYOCARDIAL ISCHAEMIA
     Route: 048
     Dates: start: 19940615

REACTIONS (9)
  - ABDOMINAL PAIN [None]
  - ACUTE PRERENAL FAILURE [None]
  - CIRCULATORY COLLAPSE [None]
  - DIARRHOEA [None]
  - DRUG INTERACTION [None]
  - LACTIC ACIDOSIS [None]
  - RENAL FAILURE ACUTE [None]
  - RESPIRATORY TRACT INFECTION [None]
  - VOMITING [None]
